FAERS Safety Report 6738064-2 (Version None)
Quarter: 2010Q2

REPORT INFORMATION
  Report Type: 
  Country: None (occurrence: None)
  Receive Date: 20100521
  Receipt Date: 20100511
  Transmission Date: 20101027
  Serious: Yes (Other)
  Sender: FDA-Public Use
  Company Number: WAES 0903USA03973

PATIENT
  Age: 67 Year
  Sex: Male

DRUGS (6)
  1. ZOCOR [Suspect]
     Indication: ACUTE CORONARY SYNDROME
     Dosage: PO
     Route: 048
     Dates: start: 20070322
  2. TAB PLACEBO (UNSPECIFIED) [Suspect]
     Indication: ACUTE CORONARY SYNDROME
     Dosage: PO
     Route: 048
     Dates: start: 20070322
  3. ASPIRIN [Concomitant]
  4. CLOPIDOGREL BISULFATE [Concomitant]
  5. METOPROLOL [Concomitant]
  6. RAMIPRIL [Concomitant]

REACTIONS (3)
  - BASAL CELL CARCINOMA [None]
  - SKIN PAPILLOMA [None]
  - SQUAMOUS CELL CARCINOMA [None]
